FAERS Safety Report 13798074 (Version 1)
Quarter: 2017Q3

REPORT INFORMATION
  Report Type: Spontaneous
  Country: US (occurrence: US)
  Receive Date: 20170726
  Receipt Date: 20170726
  Transmission Date: 20171127
  Serious: Yes (Death)
  Sender: FDA-Public Use
  Company Number: None

PATIENT
  Age: 81 Year
  Weight: 96.75 kg

DRUGS (2)
  1. PROTAMINE [Suspect]
     Active Substance: PROTAMINE
     Indication: PROCOAGULANT THERAPY
     Dosage: ?          OTHER FREQUENCY:ONE TIME;?
     Route: 013
     Dates: start: 20170717, end: 20170717
  2. ANESTHETICS [Concomitant]
     Active Substance: UNSPECIFIED INGREDIENT

REACTIONS (1)
  - Circulatory collapse [None]

NARRATIVE: CASE EVENT DATE: 20170717
